FAERS Safety Report 9725762 (Version 1)
Quarter: 2013Q4

REPORT INFORMATION
  Report Type: Spontaneous
  Country: US (occurrence: None)
  Receive Date: 20131202
  Receipt Date: 20131202
  Transmission Date: 20140711
  Serious: Yes (Disabling)
  Sender: FDA-Public Use
  Company Number: None

PATIENT
  Age: 45 Year
  Sex: Female
  Weight: 81.65 kg

DRUGS (11)
  1. LEVOFLOXACIN [Suspect]
     Indication: UPPER RESPIRATORY TRACT INFECTION
     Route: 048
     Dates: start: 20130919, end: 20130923
  2. ADDERALL [Concomitant]
  3. SYNTHROID [Concomitant]
  4. LIOTHYRONINE [Concomitant]
  5. TRAZODONE [Concomitant]
  6. ACYCLOVIR [Concomitant]
  7. BIO EST HORMONE CREAM [Concomitant]
  8. PROBIOTIC [Concomitant]
  9. CAL W/D [Concomitant]
  10. MVI [Concomitant]
  11. STOOL SOFTENERS [Concomitant]

REACTIONS (8)
  - Myalgia [None]
  - Arthralgia [None]
  - Musculoskeletal stiffness [None]
  - Fatigue [None]
  - Pain [None]
  - Arthralgia [None]
  - Back pain [None]
  - Sleep disorder [None]
